FAERS Safety Report 5359407-0 (Version None)
Quarter: 2007Q2

REPORT INFORMATION
  Report Type: 
  Country: None (occurrence: None)
  Receive Date: 20070615
  Receipt Date: 20070605
  Transmission Date: 20071010
  Serious: Yes (Other)
  Sender: FDA-Public Use
  Company Number: US-PFIZER INC-2007028291

PATIENT
  Sex: Female
  Weight: 99.8 kg

DRUGS (11)
  1. ZITHROMAX [Suspect]
     Indication: PHARYNGOLARYNGEAL PAIN
     Route: 048
     Dates: start: 20070328, end: 20070403
  2. ZITHROMAX [Suspect]
     Indication: LYMPHADENOPATHY
  3. ZITHROMAX [Suspect]
     Indication: RESPIRATORY TRACT INFECTION
  4. ACTOS [Concomitant]
  5. METFORMIN HCL [Concomitant]
  6. EFFEXOR [Concomitant]
  7. GLYBURIDE [Concomitant]
  8. ALTACE [Concomitant]
  9. ADVIL [Concomitant]
  10. PEPCID AC [Concomitant]
  11. VITAMIN CAP [Concomitant]

REACTIONS (3)
  - NODULE ON EXTREMITY [None]
  - PRURITUS [None]
  - RASH [None]
